FAERS Safety Report 8985350 (Version 1)
Quarter: 2012Q4

REPORT INFORMATION
  Report Type: 
  Country: US (occurrence: US)
  Receive Date: 20121226
  Receipt Date: 20121226
  Transmission Date: 20130627
  Serious: Yes (Other)
  Sender: FDA-Public Use
  Company Number: PHEH2012US025083

PATIENT
  Sex: Female

DRUGS (7)
  1. EXELON PATCH [Suspect]
     Indication: DEMENTIA
     Dosage: 4.6 mg, / 24 Hrs
     Route: 062
  2. PRADAXA [Suspect]
  3. AMIODARONE [Concomitant]
     Dosage: 200 mg, UNK
  4. SPIRONOLACTONE [Concomitant]
     Dosage: 25 mg, UNK
  5. FUROSEMIDE [Concomitant]
     Dosage: 40 mg, UNK
  6. METOPROLOL [Concomitant]
     Dosage: 50 mg, UNK
  7. POTASSIUM [Concomitant]
     Dosage: 20 mg, UNK

REACTIONS (3)
  - Rectal haemorrhage [Unknown]
  - Diarrhoea [Unknown]
  - Pruritus [Unknown]
